FAERS Safety Report 9517297 (Version 2)
Quarter: 2013Q3

REPORT INFORMATION
  Report Type: Spontaneous
  Country: US (occurrence: US)
  Receive Date: 20130911
  Receipt Date: 20130927
  Transmission Date: 20140515
  Serious: Yes (Other)
  Sender: FDA-Public Use
  Company Number: US-ASTRAZENECA-2013SE56869

PATIENT
  Age: 65 Year
  Sex: Female
  Weight: 126.1 kg

DRUGS (12)
  1. SYMBICORT [Suspect]
     Indication: ASTHMA
     Dosage: 160/4.5 , 2 PUFFS BID
     Route: 055
     Dates: start: 20130130, end: 20130724
  2. SYMBICORT [Suspect]
     Indication: ASTHMA
     Dosage: 160/4.5 , 2 PUFFS BID
     Route: 055
     Dates: start: 20130829, end: 20130904
  3. COMBIVENT [Concomitant]
     Indication: ASTHMA
     Dosage: 2 PUFFS
     Route: 055
     Dates: start: 20130904
  4. COMBIVENT [Concomitant]
     Indication: ASTHMA
     Dosage: 20-MCG -100 MCG, 1 PUFF, QID
     Route: 055
  5. COMBIVENT [Concomitant]
     Indication: ASTHMA
     Dosage: 0.5- 2.5 (3) MG/3 ML
     Route: 055
  6. ASMANEX TWISTHALER [Concomitant]
     Dosage: DOSE 220 MCG/ INHALATION, 2 PUFS, BID, 1 EACH
     Route: 055
  7. SINGULAIR [Concomitant]
     Route: 048
  8. ALBUTEROL SULFATE [Concomitant]
     Dosage: 2.5 MG/ 3 ML, 0.083%
     Route: 055
  9. GABAPENTIN [Concomitant]
     Route: 048
  10. HYDROCODONE- ACETAMINOPHEN [Concomitant]
     Dosage: 5-500 MG
     Route: 048
  11. NAPROXEN [Concomitant]
     Route: 048
  12. PROMETHAZINE [Concomitant]
     Route: 048

REACTIONS (2)
  - Muscle spasms [Recovered/Resolved]
  - Gait disturbance [Recovered/Resolved]
